FAERS Safety Report 8439928-4 (Version None)
Quarter: 2012Q2

REPORT INFORMATION
  Report Type: 
  Country: None (occurrence: None)
  Receive Date: 20120615
  Receipt Date: 20120605
  Transmission Date: 20120825
  Serious: Yes (Hospitalization, Other)
  Sender: FDA-Public Use
  Company Number: TW-AMGEN-TWNSP2012034742

PATIENT
  Age: 57 Year
  Sex: Female

DRUGS (9)
  1. ENBREL [Suspect]
     Indication: ANKYLOSING SPONDYLITIS
     Dosage: 25MG, 2X/WEEK
     Route: 058
  2. PREDNISOLONE [Concomitant]
     Dosage: 5MG, 2X/DAY
  3. BISOPROLOL FUMARATE [Concomitant]
     Dosage: 2.5MG, 1X/DAY
  4. GABAPENTIN [Concomitant]
     Dosage: 300MG, 3X/DAY
  5. MELOXICAM [Concomitant]
     Dosage: 15MG, 1X/DAY
  6. OMEPRAZOLE [Concomitant]
     Dosage: 20MG, 1X/DAY
  7. LEUCOVORIN CALCIUM [Concomitant]
     Dosage: 5MG, 1X/DAY
  8. COZAAR [Concomitant]
     Dosage: 50 MG, QWK
  9. ULTRACET [Concomitant]
     Dosage: 1 DF, 3X/DAY

REACTIONS (5)
  - CELLULITIS [None]
  - ROAD TRAFFIC ACCIDENT [None]
  - JOINT SWELLING [None]
  - FRACTURE [None]
  - FALL [None]
